FAERS Safety Report 21694116 (Version 1)
Quarter: 2022Q4

REPORT INFORMATION
  Report Type: Spontaneous
  Country: US (occurrence: US)
  Receive Date: 20221207
  Receipt Date: 20221207
  Transmission Date: 20230112
  Serious: No
  Sender: FDA-Public Use
  Company Number: US-BEH-2022152730

PATIENT
  Sex: Male

DRUGS (1)
  1. HIZENTRA [Suspect]
     Active Substance: HUMAN IMMUNOGLOBULIN G
     Indication: Primary immunodeficiency syndrome
     Dosage: 10 GRAM
     Route: 058

REACTIONS (4)
  - Infusion site mass [Recovered/Resolved]
  - Wrong technique in product usage process [Unknown]
  - Infusion site pain [Unknown]
  - Wrong technique in product usage process [Recovered/Resolved]
